FAERS Safety Report 14064331 (Version 2)
Quarter: 2017Q4

REPORT INFORMATION
  Report Type: Spontaneous
  Country: FR (occurrence: FR)
  Receive Date: 20171009
  Receipt Date: 20171010
  Transmission Date: 20180321
  Serious: Yes (Other)
  Sender: FDA-Public Use
  Company Number: FR-VERICEL CORPORATION-VCEL-2017-000807

PATIENT

DRUGS (1)
  1. CARTICEL [Suspect]
     Active Substance: AUTOLOGOUS CULTURED CHONDROCYTES
     Indication: CARTILAGE INJURY
     Dosage: UNK
     Route: 065

REACTIONS (2)
  - Arthropathy [Unknown]
  - Transplant failure [Unknown]
